FAERS Safety Report 19481720 (Version 1)
Quarter: 2021Q3

REPORT INFORMATION
  Report Type: Spontaneous
  Country: CA (occurrence: CA)
  Receive Date: 20210701
  Receipt Date: 20210701
  Transmission Date: 20211014
  Serious: Yes (Other)
  Sender: FDA-Public Use
  Company Number: CA-ACCORD-229383

PATIENT
  Age: 61 Year
  Sex: Male

DRUGS (3)
  1. VALPROIC ACID. [Concomitant]
     Active Substance: VALPROIC ACID
     Indication: MYOCLONUS
  2. MYCOPHENOLIC ACID. [Suspect]
     Active Substance: MYCOPHENOLIC ACID
     Indication: MYOCLONUS
     Route: 048
  3. MYCOPHENOLIC ACID. [Suspect]
     Active Substance: MYCOPHENOLIC ACID
     Indication: COELIAC DISEASE
     Route: 048

REACTIONS (4)
  - Drug ineffective [Unknown]
  - Condition aggravated [Recovered/Resolved]
  - Paradoxical drug reaction [Recovered/Resolved]
  - Myoclonus [Recovered/Resolved]
